FAERS Safety Report 9551527 (Version 1)
Quarter: 2013Q3

REPORT INFORMATION
  Report Type: Spontaneous
  Country: US (occurrence: None)
  Receive Date: 20130724
  Receipt Date: 20130724
  Transmission Date: 20140515
  Serious: Yes (Other)
  Sender: FDA-Public Use
  Company Number: PHEH2013US006633

PATIENT
  Age: 64 Year
  Sex: Male

DRUGS (5)
  1. GLEEVEC [Suspect]
     Indication: GRAFT VERSUS HOST DISEASE
     Route: 048
     Dates: start: 20121228
  2. GLEEVEC [Suspect]
     Indication: BONE MARROW TRANSPLANT
     Route: 048
     Dates: start: 20121228
  3. GLEEVEC [Suspect]
     Indication: POST PROCEDURAL COMPLICATION
     Route: 048
     Dates: start: 20121228
  4. PROGRAF [Suspect]
  5. PREDNISONE (PREDNISONE) [Concomitant]

REACTIONS (4)
  - Bronchitis [None]
  - Fatigue [None]
  - Musculoskeletal stiffness [None]
  - Dizziness [None]
